FAERS Safety Report 8589328-1 (Version None)
Quarter: 2012Q3

REPORT INFORMATION
  Report Type: 
  Country: None (occurrence: None)
  Receive Date: 20120813
  Receipt Date: 20120731
  Transmission Date: 20120928
  Serious: Yes (Death)
  Sender: FDA-Public Use
  Company Number: DE-ELI_LILLY_AND_COMPANY-DE201101003481

PATIENT
  Sex: Male
  Weight: 56 kg

DRUGS (6)
  1. CISPLATIN [Suspect]
     Indication: NON-SMALL CELL LUNG CANCER
     Dosage: 93 MG, UNK
     Dates: start: 20101018
  2. RAMIPRIL [Concomitant]
     Indication: HYPERTENSION
     Dates: start: 20101004
  3. FORMOTEROL FUMARATE [Concomitant]
     Indication: CHRONIC OBSTRUCTIVE PULMONARY DISEASE
     Dates: start: 20100901
  4. NECITUMUMAB (11F8) (LY3012211) [Suspect]
     Indication: NON-SMALL CELL LUNG CANCER
     Dosage: 600 MG, UNK
     Dates: start: 20101018
  5. GEMCITABINE HYDROCHLORIDE [Suspect]
     Indication: NON-SMALL CELL LUNG CANCER
     Dosage: 1585 MG, UNK
     Dates: start: 20101018
  6. RAMIPRIL [Concomitant]
     Indication: HYPERTENSION
     Dates: start: 20101014

REACTIONS (1)
  - DEATH [None]
